FAERS Safety Report 8524450-7 (Version None)
Quarter: 2012Q3

REPORT INFORMATION
  Report Type: 
  Country: None (occurrence: None)
  Receive Date: 20120720
  Receipt Date: 20120719
  Transmission Date: 20120928
  Serious: No
  Sender: FDA-Public Use
  Company Number: US-PFIZER INC-2012175084

PATIENT
  Sex: Female
  Weight: 66.667 kg

DRUGS (4)
  1. STRATTERA [Concomitant]
     Indication: ATTENTION DEFICIT/HYPERACTIVITY DISORDER
     Dosage: 80 MG, UNK
  2. PRISTIQ [Suspect]
     Indication: DEPRESSION
     Dosage: 50 MG, 1X/DAY
     Route: 048
     Dates: start: 20120101, end: 20120716
  3. LAMOTRIGINE [Concomitant]
     Indication: AFFECTIVE DISORDER
     Dosage: 100 MG, UNK
  4. CLONAZEPAM [Concomitant]
     Indication: FEELING OF RELAXATION
     Dosage: 1 MG, UNK

REACTIONS (7)
  - VITAMIN D DECREASED [None]
  - IRRITABILITY [None]
  - HYPERHIDROSIS [None]
  - DIZZINESS [None]
  - NAUSEA [None]
  - DEPRESSED MOOD [None]
  - VITAMIN B12 DECREASED [None]
